FAERS Safety Report 24663709 (Version 1)
Quarter: 2024Q4

REPORT INFORMATION
  Report Type: Spontaneous
  Country: AU (occurrence: AU)
  Receive Date: 20241126
  Receipt Date: 20241126
  Transmission Date: 20250114
  Serious: Yes (Other)
  Sender: STRIDES
  Company Number: AU-STRIDES ARCOLAB LIMITED-2024SP015232

PATIENT

DRUGS (5)
  1. PREDNISOLONE [Suspect]
     Active Substance: PREDNISOLONE
     Indication: Plasma cell myeloma
     Dosage: 60 MILLIGRAM/SQ. METER, CYCLICAL (STARTED RECEIVING ON DAYS 1?5 OF THE CYCLE, EVERY 28 DAYS)
     Route: 048
  2. DOXORUBICIN [Suspect]
     Active Substance: DOXORUBICIN
     Indication: Plasma cell myeloma
     Dosage: 30 MILLIGRAM/SQ. METER, CYCLICAL (STARTED RECEIVING ON DAY 1 OF THE CYCLE, EVERY 28 DAYS)
     Route: 042
  3. CYCLOPHOSPHAMIDE [Suspect]
     Active Substance: CYCLOPHOSPHAMIDE
     Indication: Plasma cell myeloma
     Dosage: 600 MILLIGRAM/SQ. METER, CYCLICAL (STARTED RECEIVING ON DAY 1 OF THE CYCLE, EVERY 28 DAYS)
     Route: 042
  4. CARMUSTINE [Suspect]
     Active Substance: CARMUSTINE
     Indication: Plasma cell myeloma
     Dosage: 30 MILLIGRAM/SQ. METER, CYCLICAL (STARTED RECEIVING ON DAY 1 OF THE CYCLE, EVERY 28 DAYS)
     Route: 042
  5. BORTEZOMIB [Suspect]
     Active Substance: BORTEZOMIB
     Indication: Plasma cell myeloma
     Dosage: UNK
     Route: 058

REACTIONS (2)
  - Neuropathy peripheral [Unknown]
  - Off label use [Unknown]
